FAERS Safety Report 6697652-2 (Version None)
Quarter: 2010Q2

REPORT INFORMATION
  Report Type: 
  Country: None (occurrence: None)
  Receive Date: 20100426
  Receipt Date: 20100416
  Transmission Date: 20101027
  Serious: Yes (Other)
  Sender: FDA-Public Use
  Company Number: US-ABBOTT-10P-163-0639381-00

PATIENT
  Sex: Male
  Weight: 16.5 kg

DRUGS (1)
  1. OMNICEF [Suspect]
     Indication: EAR INFECTION
     Dosage: 14MG PER KILOGRAM, 231MG, ONCE DAILY
     Route: 048
     Dates: start: 20100321, end: 20100326

REACTIONS (5)
  - ABNORMAL BEHAVIOUR [None]
  - AGGRESSION [None]
  - AGITATION [None]
  - CONJUNCTIVITIS [None]
  - CRYING [None]
